FAERS Safety Report 9008674 (Version 1)
Quarter: 2013Q1

REPORT INFORMATION
  Report Type: Spontaneous
  Country: FR (occurrence: FR)
  Receive Date: 20130111
  Receipt Date: 20130111
  Transmission Date: 20140127
  Serious: Yes (Other)
  Sender: FDA-Public Use
  Company Number: FR-PFIZER INC-2013006149

PATIENT
  Age: 43 Year
  Sex: Male

DRUGS (1)
  1. DALACINE [Suspect]
     Dosage: 1 DF, SINGLE
     Route: 048
     Dates: start: 2012, end: 2012

REACTIONS (4)
  - Urticaria [Recovered/Resolved]
  - Pruritus [Recovered/Resolved]
  - Dyspnoea [Recovered/Resolved]
  - Dysphagia [Recovered/Resolved]
